FAERS Safety Report 10027968 (Version 1)
Quarter: 2014Q1

REPORT INFORMATION
  Report Type: Spontaneous
  Country: JP (occurrence: None)
  Receive Date: 20140226
  Receipt Date: 20140226
  Transmission Date: 20141002
  Serious: Yes (Hospitalization, Other)
  Sender: FDA-Public Use
  Company Number: ADR-2010-9426

PATIENT
  Age: 40 Year
  Sex: Female

DRUGS (1)
  1. GABALON [Suspect]
     Indication: DRUG THERAPY
     Dosage: UNK MCG, DAILY, INTRATH
     Route: 037

REACTIONS (7)
  - Implant site extravasation [None]
  - Catheter site inflammation [None]
  - Activities of daily living impaired [None]
  - No therapeutic response [None]
  - Implant site irritation [None]
  - Muscle spasms [None]
  - Muscle spasticity [None]
